FAERS Safety Report 9027265 (Version 1)
Quarter: 2013Q1

REPORT INFORMATION
  Report Type: Report from Study
  Country: US (occurrence: US)
  Receive Date: 20130123
  Receipt Date: 20130123
  Transmission Date: 20140127
  Serious: Yes (Hospitalization)
  Sender: FDA-Public Use
  Company Number: US-ABBOTT-13P-163-1036162-00

PATIENT
  Sex: Female
  Weight: 72.64 kg

DRUGS (7)
  1. HUMIRA [Suspect]
     Indication: COLITIS ULCERATIVE
     Route: 058
     Dates: end: 201301
  2. VANLASAXINE [Concomitant]
     Indication: DEPRESSION
  3. FOLIC ACID [Concomitant]
     Indication: FOLATE DEFICIENCY
  4. TRAMADOL [Concomitant]
     Indication: PAIN
  5. TRAMADOL [Concomitant]
     Indication: COLITIS ULCERATIVE
  6. IRON [Concomitant]
     Indication: MINERAL SUPPLEMENTATION
  7. PREDNISONE [Concomitant]
     Indication: COLITIS ULCERATIVE

REACTIONS (5)
  - Diarrhoea haemorrhagic [Recovered/Resolved]
  - Colitis ulcerative [Not Recovered/Not Resolved]
  - Proctalgia [Recovered/Resolved]
  - Diarrhoea [Recovered/Resolved]
  - Abnormal loss of weight [Not Recovered/Not Resolved]
